FAERS Safety Report 4618064-9 (Version None)
Quarter: 2005Q1

REPORT INFORMATION
  Report Type: 
  Country: None (occurrence: None)
  Receive Date: 20050322
  Receipt Date: 20050216
  Transmission Date: 20050727
  Serious: Yes (Hospitalization, Other)
  Sender: FDA-Public Use
  Company Number: 2004091437

PATIENT
  Age: 83 Year
  Sex: Female
  Weight: 53.5244 kg

DRUGS (6)
  1. BEXTRA [Suspect]
     Indication: OSTEOARTHRITIS
     Dosage: 20 MG (20 MG, 1 IN 1 D), ORAL
     Route: 048
     Dates: start: 20021202, end: 20021208
  2. BEXTRA [Suspect]
     Indication: OSTEOPOROSIS
     Dosage: 20 MG (20 MG, 1 IN 1 D), ORAL
     Route: 048
     Dates: start: 20021202, end: 20021208
  3. LIPITOR [Suspect]
     Indication: BLOOD CHOLESTEROL INCREASED
     Dosage: 10 MG (10 MG, 1 IN 1 D), ORAL
     Route: 048
     Dates: start: 19971020
  4. ALL OTHER THERAPEUTIC PRODUCTS (ALL OTHER THERAPEUTIC PRODUCTS) [Suspect]
     Indication: ORAL MUCOSAL BLISTERING
     Dates: start: 20021201
  5. ANTIHYPERTENSIVES (ANTIHYPERTENSIVES) [Suspect]
     Indication: HYPERTENSION
     Dates: start: 20040101, end: 20040101
  6. METOPROLOL TARTRATE [Suspect]
     Indication: HYPERTENSION
     Dates: start: 20040101, end: 20040101

REACTIONS (29)
  - ALOPECIA [None]
  - ASTHENIA [None]
  - BACTERIA URINE NO ORGANISM OBSERVED [None]
  - BLISTER [None]
  - BLOOD GLUCOSE INCREASED [None]
  - BLOOD PRESSURE DIASTOLIC DECREASED [None]
  - BLOOD PRESSURE DIASTOLIC INCREASED [None]
  - BLOOD UREA INCREASED [None]
  - CYSTITIS [None]
  - DIZZINESS [None]
  - DRUG HYPERSENSITIVITY [None]
  - DRY SKIN [None]
  - EOSINOPHIL COUNT INCREASED [None]
  - HYPERTENSION [None]
  - LYMPHOCYTE COUNT DECREASED [None]
  - NAUSEA [None]
  - NEUTROPHIL COUNT INCREASED [None]
  - ORAL CANDIDIASIS [None]
  - ORAL INTAKE REDUCED [None]
  - OSTEOPOROSIS [None]
  - PYREXIA [None]
  - RESPIRATORY RATE INCREASED [None]
  - SEPSIS [None]
  - STEVENS-JOHNSON SYNDROME [None]
  - TREMOR [None]
  - URTICARIA [None]
  - WEIGHT DECREASED [None]
  - WHITE BLOOD CELL COUNT INCREASED [None]
  - WHITE BLOOD CELLS URINE POSITIVE [None]
